FAERS Safety Report 9142714 (Version 3)
Quarter: 2013Q4

REPORT INFORMATION
  Report Type: Spontaneous
  Country: FR (occurrence: FR)
  Receive Date: 20130306
  Receipt Date: 20131111
  Transmission Date: 20140711
  Serious: Yes (Death)
  Sender: FDA-Public Use
  Company Number: FR-BRISTOL-MYERS SQUIBB COMPANY-17432667

PATIENT
  Age: 49 Year
  Sex: Female

DRUGS (6)
  1. MITOMYCIN-C [Suspect]
     Indication: SQUAMOUS CELL CARCINOMA
     Dosage: PREVIOUSLY TOOK ON 08AUG2012
     Route: 042
     Dates: start: 20120827, end: 20120827
  2. 5-FLUOROURACIL [Suspect]
     Indication: SQUAMOUS CELL CARCINOMA
     Dosage: PREVIOUSLY TOOK ON 08AUG2012
     Route: 042
     Dates: start: 20120827, end: 20120829
  3. GABAPENTINE [Concomitant]
     Route: 048
  4. MORPHINE [Concomitant]
     Route: 048
  5. CITALOPRAM [Concomitant]
     Route: 048
  6. AVONEX [Concomitant]
     Dosage: INJ

REACTIONS (2)
  - Nervous system disorder [Fatal]
  - Renal failure acute [Fatal]
